FAERS Safety Report 9626596 (Version 1)
Quarter: 2013Q4

REPORT INFORMATION
  Report Type: Spontaneous
  Country: CN (occurrence: CN)
  Receive Date: 20131016
  Receipt Date: 20131016
  Transmission Date: 20140711
  Serious: Yes (Other)
  Sender: FDA-Public Use
  Company Number: CN-GLAXOSMITHKLINE-B0929021A

PATIENT
  Age: 38 Year
  Sex: Male
  Weight: 75 kg

DRUGS (1)
  1. FLIXONASE [Suspect]
     Indication: RHINITIS ALLERGIC
     Dosage: 50UG PER DAY
     Route: 045
     Dates: start: 20120217, end: 20120217

REACTIONS (4)
  - Anaphylactic reaction [Recovering/Resolving]
  - Nasal discomfort [Recovered/Resolved]
  - Sensation of foreign body [Recovered/Resolved]
  - Drug ineffective [Unknown]
